FAERS Safety Report 22006892 (Version 2)
Quarter: 2023Q1

REPORT INFORMATION
  Report Type: Spontaneous
  Country: US (occurrence: US)
  Receive Date: 20230217
  Receipt Date: 20230224
  Transmission Date: 20230418
  Serious: No
  Sender: FDA-Public Use
  Company Number: US-BRISTOL-MYERS SQUIBB COMPANY-2023-023903

PATIENT
  Age: 72 Year
  Sex: Male
  Weight: 172 kg

DRUGS (2)
  1. REVLIMID [Suspect]
     Active Substance: LENALIDOMIDE
     Indication: Plasma cell myeloma
     Dosage: FREQ - 21
     Route: 048
     Dates: start: 20230213
  2. LIPITOR [Concomitant]
     Active Substance: ATORVASTATIN CALCIUM
     Indication: Product used for unknown indication

REACTIONS (5)
  - Headache [Recovered/Resolved]
  - Hypersensitivity [Unknown]
  - Face oedema [Unknown]
  - Eyelid oedema [Unknown]
  - Rash [Unknown]

NARRATIVE: CASE EVENT DATE: 20230215
